FAERS Safety Report 19106562 (Version 20)
Quarter: 2022Q2

REPORT INFORMATION
  Report Type: Spontaneous
  Country: JP (occurrence: JP)
  Receive Date: 20210407
  Receipt Date: 20220615
  Transmission Date: 20220720
  Serious: Yes (Death, Life-Threatening, Hospitalization, Other)
  Sender: FDA-Public Use
  Company Number: JP-BRISTOL-MYERS SQUIBB COMPANY-BMS-2021-032249

PATIENT
  Age: 79 Year
  Sex: Male
  Weight: 65.6 kg

DRUGS (18)
  1. YERVOY [Suspect]
     Active Substance: IPILIMUMAB
     Indication: Non-small cell lung cancer recurrent
     Dosage: 66 MG
     Route: 041
     Dates: start: 20210303, end: 20210303
  2. OPDIVO [Suspect]
     Active Substance: NIVOLUMAB
     Indication: Non-small cell lung cancer recurrent
     Dosage: 360 MILLIGRAM
     Route: 041
     Dates: start: 20210303, end: 20210303
  3. ROSUVASTATIN [Suspect]
     Active Substance: ROSUVASTATIN
     Indication: Angina pectoris
     Dosage: 5 MILLIGRAM, QD
     Route: 048
     Dates: end: 20210323
  4. ROSUVASTATIN [Suspect]
     Active Substance: ROSUVASTATIN
     Indication: Hyperlipidaemia
  5. JANUVIA [Concomitant]
     Active Substance: SITAGLIPTIN PHOSPHATE
     Indication: Product used for unknown indication
     Dosage: 50 MG, EVERYDAY
     Route: 048
  6. JANUVIA [Concomitant]
     Active Substance: SITAGLIPTIN PHOSPHATE
     Dosage: 50 MG, EVERYDAY
     Route: 048
     Dates: end: 20210323
  7. LUSEOGLIFLOZIN [Concomitant]
     Active Substance: LUSEOGLIFLOZIN
     Indication: Product used for unknown indication
     Dosage: 5 MG, EVERYDAY
     Route: 048
  8. LUSEOGLIFLOZIN [Concomitant]
     Active Substance: LUSEOGLIFLOZIN
     Dosage: 5 MG, EVERYDAY
     Route: 048
     Dates: end: 20210323
  9. MICARDIS [Concomitant]
     Active Substance: TELMISARTAN
     Indication: Product used for unknown indication
     Dosage: 40 MG, EVERYDAY
     Route: 048
  10. MICARDIS [Concomitant]
     Active Substance: TELMISARTAN
     Dosage: 40 MG, EVERYDAY
     Route: 048
     Dates: end: 20210323
  11. VONOPRAZAN FUMARATE [Concomitant]
     Active Substance: VONOPRAZAN FUMARATE
     Indication: Prophylaxis
     Dosage: 10 MG, EVERYDAY
     Route: 048
  12. VONOPRAZAN FUMARATE [Concomitant]
     Active Substance: VONOPRAZAN FUMARATE
     Indication: Product used for unknown indication
     Dosage: UNK
     Route: 048
     Dates: end: 20210324
  13. VONOPRAZAN FUMARATE [Concomitant]
     Active Substance: VONOPRAZAN FUMARATE
     Dosage: 10 MG, EVERYDAY
     Route: 048
     Dates: end: 20210323
  14. ADALAT [Concomitant]
     Active Substance: NIFEDIPINE
     Dosage: 20 MG, EVERYDAY
     Route: 048
  15. ADALAT [Concomitant]
     Active Substance: NIFEDIPINE
     Indication: Product used for unknown indication
     Dosage: UNK
     Route: 048
     Dates: start: 20210323, end: 20210324
  16. ADALAT [Concomitant]
     Active Substance: NIFEDIPINE
     Dosage: 20 MG, EVERYDAY
     Route: 048
     Dates: end: 20210323
  17. BUFFERIN [ACETYLSALICYLIC ACID] [Concomitant]
     Indication: Product used for unknown indication
     Dosage: 1 DF, EVERYDAY
     Route: 048
  18. BUFFERIN 500 [Concomitant]
     Indication: Product used for unknown indication
     Dosage: UNK
     Route: 048

REACTIONS (18)
  - Rhabdomyolysis [Not Recovered/Not Resolved]
  - Immune-mediated myocarditis [Fatal]
  - Immune-mediated myositis [Fatal]
  - Cardiac failure acute [Fatal]
  - Myasthenia gravis [Fatal]
  - Joint range of motion decreased [Unknown]
  - Diplopia [Unknown]
  - Motor dysfunction [Unknown]
  - Malaise [Unknown]
  - Troponin I increased [Unknown]
  - White blood cell count increased [Unknown]
  - Aspartate aminotransferase increased [Unknown]
  - Alanine aminotransferase increased [Unknown]
  - Blood lactate dehydrogenase increased [Unknown]
  - Blood creatine phosphokinase MB increased [Unknown]
  - Blood urea increased [Unknown]
  - Hyperglycaemia [Unknown]
  - C-reactive protein increased [Unknown]

NARRATIVE: CASE EVENT DATE: 20210319
